FAERS Safety Report 4727276-5 (Version None)
Quarter: 2005Q3

REPORT INFORMATION
  Report Type: 
  Country: None (occurrence: None)
  Receive Date: 20050727
  Receipt Date: 20050727
  Transmission Date: 20060218
  Serious: No
  Sender: FDA-Public Use
  Company Number: None

PATIENT
  Age: 75 Year
  Sex: Male
  Weight: 80.7 kg

DRUGS (11)
  1. WARFARIN [Suspect]
     Dosage: VARIOUS, VARIOUS, ORAL
     Route: 048
  2. HYDROCODONE/ACETAMINOPHEN [Concomitant]
  3. OMEPRAZOLE [Concomitant]
  4. LANOXIN [Concomitant]
  5. LOPERAMIDE HCL [Concomitant]
  6. ATENOLOL [Concomitant]
  7. CELECOXIB [Concomitant]
  8. DOCUSATE NA [Concomitant]
  9. FERROUS SO4 [Concomitant]
  10. FOLIC ACID [Concomitant]
  11. MULTI-VITAMIN [Concomitant]

REACTIONS (1)
  - INTERNATIONAL NORMALISED RATIO INCREASED [None]
